FAERS Safety Report 5201639-6 (Version None)
Quarter: 2006Q4

REPORT INFORMATION
  Report Type: 
  Country: None (occurrence: None)
  Receive Date: 20061006
  Receipt Date: 20050920
  Transmission Date: 20070319
  Serious: Yes (Other)
  Sender: FDA-Public Use
  Company Number: 200511369BWH

PATIENT
  Age: 36 Year
  Sex: Female

DRUGS (2)
  1. CIPRO XR [Suspect]
     Indication: PYELONEPHRITIS
     Dosage: 1000 MG, QD, ORAL
     Route: 048
     Dates: start: 20050101
  2. AMOXICILLIN [Suspect]
     Indication: GASTRITIS

REACTIONS (9)
  - CONFUSIONAL STATE [None]
  - DISCOMFORT [None]
  - DIZZINESS [None]
  - FEELING ABNORMAL [None]
  - JAUNDICE [None]
  - NAUSEA [None]
  - PAIN [None]
  - PANCREATITIS [None]
  - SKIN DISCOLOURATION [None]
